FAERS Safety Report 9774614 (Version 1)
Quarter: 2013Q4

REPORT INFORMATION
  Report Type: Spontaneous
  Country: US (occurrence: US)
  Receive Date: 20131220
  Receipt Date: 20131220
  Transmission Date: 20140711
  Serious: No
  Sender: FDA-Public Use
  Company Number: US-BAYER-2013-154755

PATIENT
  Age: 43 Year
  Sex: Female
  Weight: 80.73 kg

DRUGS (1)
  1. CLIMARA [Suspect]
     Indication: HORMONE REPLACEMENT THERAPY

REACTIONS (7)
  - Emotional disorder [None]
  - Disturbance in attention [None]
  - Paraesthesia [None]
  - Feeling abnormal [None]
  - Uterine spasm [None]
  - Drug ineffective [None]
  - Hot flush [None]
